FAERS Safety Report 6970217-0 (Version None)
Quarter: 2010Q3

REPORT INFORMATION
  Report Type: 
  Country: None (occurrence: None)
  Receive Date: 20100908
  Receipt Date: 20100825
  Transmission Date: 20110219
  Serious: Yes (Death, Hospitalization, Other)
  Sender: FDA-Public Use
  Company Number: JP-BAYER-201038201GPV

PATIENT
  Age: 12 Month
  Sex: Male
  Weight: 7 kg

DRUGS (19)
  1. FLUDARABINE PHOSPHATE [Suspect]
     Indication: STEM CELL TRANSPLANT
     Dates: start: 20100413, end: 20100418
  2. THYMOGLOBULIN [Suspect]
     Indication: STEM CELL TRANSPLANT
     Dosage: TOTAL DAILY DOSE: 8.5 MG
     Route: 042
     Dates: start: 20100413, end: 20100414
  3. ETOPOSIDE [Suspect]
     Indication: HAEMATOPOIETIC STEM CELL MOBILISATION
     Dates: start: 20100408, end: 20100415
  4. CYTARABINE [Suspect]
     Indication: STEM CELL TRANSPLANT
     Dates: start: 20100408, end: 20100415
  5. MELPHALAN [Suspect]
     Indication: STEM CELL TRANSPLANT
     Dates: start: 20100413, end: 20100413
  6. CYCLOPHOSPHAMIDE [Suspect]
     Indication: STEM CELL TRANSPLANT
     Dates: start: 20100418, end: 20100418
  7. GRANULOCYTE COLONY STIMULATING FACTOR [Concomitant]
     Indication: INFECTION PROPHYLAXIS
     Dates: start: 20090308, end: 20090311
  8. GRANISETRON HYDROCHLORIDE [Concomitant]
     Indication: NAUSEA
     Dates: start: 20100408, end: 20100418
  9. METHYLPREDNISOLONE SODIUM SUCCINATE [Concomitant]
     Indication: PREMEDICATION
     Dates: start: 20100413, end: 20100414
  10. MESNA [Concomitant]
     Indication: CYSTITIS HAEMORRHAGIC
  11. TACROLIMUS [Concomitant]
     Indication: PROPHYLAXIS AGAINST GRAFT VERSUS HOST DISEASE
     Dates: start: 20100419, end: 20100507
  12. MEROPENEM TRIHYDRATE [Concomitant]
     Indication: INFECTION PROPHYLAXIS
     Dates: start: 20091201, end: 20100503
  13. PAZUFLOXACIN MESILATE [Concomitant]
     Indication: INFECTION PROPHYLAXIS
     Dates: start: 20100331, end: 20100427
  14. MICAFUNGIN SODIUM [Concomitant]
     Indication: ANTIFUNGAL PROPHYLAXIS
     Dates: start: 20100326
  15. LENOGRASTIM (GENETICAL REC0MBINATION) [Concomitant]
     Indication: INFECTION PROPHYLAXIS
  16. MAP (CONCENTRATED HUMAN RED BLOOD CELLS) [Concomitant]
     Indication: ANAEMIA PROPHYLAXIS
  17. PC (CONCENTRATED HUMAN BLOOD PLATELET) [Concomitant]
     Indication: THROMBOCYTOPENIA
     Dates: start: 20100418
  18. DEXMEDETOMIDINE HYDROCHLORIDE [Concomitant]
     Indication: HISTIOCYTOSIS HAEMATOPHAGIC
     Dates: start: 20100501
  19. VORICONAZOLE [Concomitant]
     Indication: CANDIDA SEPSIS
     Dates: start: 20100510

REACTIONS (8)
  - ACUTE GRAFT VERSUS HOST DISEASE IN LIVER [None]
  - ACUTE GRAFT VERSUS HOST DISEASE IN SKIN [None]
  - CANDIDA SEPSIS [None]
  - DISSEMINATED INTRAVASCULAR COAGULATION [None]
  - HAEMOLYSIS [None]
  - HISTIOCYTOSIS HAEMATOPHAGIC [None]
  - IMMUNODEFICIENCY CONGENITAL [None]
  - SEPSIS [None]
